FAERS Safety Report 21123136 (Version 1)
Quarter: 2022Q3

REPORT INFORMATION
  Report Type: Spontaneous
  Country: US (occurrence: US)
  Receive Date: 20220724
  Receipt Date: 20220724
  Transmission Date: 20221026
  Serious: No
  Sender: FDA-Public Use
  Company Number: US-STRIDES ARCOLAB LIMITED-2021SP027114

PATIENT
  Sex: Female

DRUGS (9)
  1. MYCOPHENOLATE MOFETIL [Suspect]
     Active Substance: MYCOPHENOLATE MOFETIL
     Indication: Transplant
     Dosage: 1 GRAM, BID
     Route: 065
  2. MYCOPHENOLATE MOFETIL [Suspect]
     Active Substance: MYCOPHENOLATE MOFETIL
     Dosage: 720 MILLIGRAM, BID, ENTERIC COATED (CONTROLLED RELEASE)
     Route: 065
  3. MYCOPHENOLATE MOFETIL [Suspect]
     Active Substance: MYCOPHENOLATE MOFETIL
     Dosage: 360 MILLIGRAM, BID, ENTERIC COATED (CONTROLLED RELEASE)
     Route: 065
  4. MYCOPHENOLATE MOFETIL [Suspect]
     Active Substance: MYCOPHENOLATE MOFETIL
     Dosage: 360 MILLIGRAM, DAILY, ENTERIC COATED (CONTROLLED RELEASE)
     Route: 065
  5. PREDNISONE [Concomitant]
     Active Substance: PREDNISONE
     Indication: Transplant
     Dosage: UNK, PREDNISONE TAPER
     Route: 065
  6. PREDNISONE [Concomitant]
     Active Substance: PREDNISONE
     Dosage: 20 MILLIGRAM, DAILY (WEANED)
     Route: 065
  7. TACROLIMUS [Concomitant]
     Active Substance: TACROLIMUS
     Indication: Transplant
     Dosage: UNK
     Route: 061
  8. RAPAMYCIN [Concomitant]
     Active Substance: SIROLIMUS
     Indication: Chronic kidney disease
     Dosage: UNK, GOAL LEVELS 4 TO 6 NG/ML
     Route: 065
  9. THYMOGLOBULIN [Concomitant]
     Active Substance: LAPINE T-LYMPHOCYTE IMMUNE GLOBULIN
     Indication: Transplant
     Dosage: UNK
     Route: 065

REACTIONS (3)
  - Diarrhoea [Unknown]
  - Anaemia [Unknown]
  - Off label use [Unknown]
